FAERS Safety Report 22638867 (Version 1)
Quarter: 2023Q2

REPORT INFORMATION
  Report Type: Spontaneous
  Country: FR (occurrence: FR)
  Receive Date: 20230626
  Receipt Date: 20230626
  Transmission Date: 20230722
  Serious: Yes (Hospitalization)
  Sender: FDA-Public Use
  Company Number: None

PATIENT
  Age: 73 Year
  Sex: Female
  Weight: 60 kg

DRUGS (9)
  1. AMOXICILLIN [Suspect]
     Active Substance: AMOXICILLIN
     Indication: Dental care
     Route: 065
     Dates: start: 20230317, end: 20230317
  2. DOLIPRANE [Suspect]
     Active Substance: ACETAMINOPHEN
     Indication: Dental care
     Route: 065
     Dates: start: 20230317, end: 20230317
  3. KARDEGIC [Concomitant]
     Active Substance: ASPIRIN DL-LYSINE
     Indication: Product used for unknown indication
     Dosage: 1 DOSAGE FORMS DAILY; 1 SACHET AT NOON (0-1-0)
     Route: 065
  4. GLICLAZIDE [Concomitant]
     Active Substance: GLICLAZIDE
     Indication: Product used for unknown indication
     Dosage: 30 MILLIGRAM DAILY; 1CP IN THE MORNING (1-0-0)
     Route: 065
  5. RAMIPRIL [Concomitant]
     Active Substance: RAMIPRIL
     Indication: Product used for unknown indication
     Dosage: 5 MILLIGRAM DAILY; 1 TAB IN THE MORNING (1-0-0)
     Route: 065
  6. INSULIN GLARGINE [Concomitant]
     Active Substance: INSULIN GLARGINE
     Indication: Product used for unknown indication
     Dosage: 8 IU (INTERNATIONAL UNIT) DAILY; 8 IU IN THE EVENING
     Route: 065
  7. BISOPROLOL FUMARATE [Concomitant]
     Active Substance: BISOPROLOL FUMARATE
     Indication: Product used for unknown indication
     Dosage: 10 MILLIGRAM DAILY; 1 TAB IN THE MORNING (1-0-0)
     Route: 065
  8. AMLODIPINE [Concomitant]
     Active Substance: AMLODIPINE BESYLATE
     Indication: Product used for unknown indication
     Dosage: 5 MILLIGRAM DAILY; 1 CP IN THE EVENING (0-0-1)
     Route: 065
  9. METFORMIN HYDROCHLORIDE [Concomitant]
     Active Substance: METFORMIN HYDROCHLORIDE
     Indication: Product used for unknown indication
     Dosage: 2000 MILLIGRAM DAILY; 1 TABLET TWICE A DAY (0-1-1)
     Route: 065

REACTIONS (2)
  - Dermatitis bullous [Recovered/Resolved]
  - Fixed eruption [Recovered/Resolved]

NARRATIVE: CASE EVENT DATE: 20230318
